FAERS Safety Report 15319603 (Version 2)
Quarter: 2018Q3

REPORT INFORMATION
  Report Type: Report from Study
  Country: JP (occurrence: JP)
  Receive Date: 20180827
  Receipt Date: 20180917
  Transmission Date: 20181010
  Serious: Yes (Death)
  Sender: FDA-Public Use
  Company Number: JP-ACTELION-A-CH2018-177868

PATIENT
  Age: 69 Year
  Sex: Male

DRUGS (11)
  1. ALDACTONE A [Concomitant]
     Active Substance: SPIRONOLACTONE
  2. REVATIO [Concomitant]
     Active Substance: SILDENAFIL CITRATE
  3. WARFARIN [Concomitant]
     Active Substance: WARFARIN
  4. PROCYLIN [Concomitant]
     Active Substance: BERAPROST SODIUM
  5. LASIX [Concomitant]
     Active Substance: FUROSEMIDE
  6. TRAZENTA [Concomitant]
     Active Substance: LINAGLIPTIN
  7. OXYGEN. [Concomitant]
     Active Substance: OXYGEN
  8. MAINTATE [Concomitant]
     Active Substance: BISOPROLOL FUMARATE
  9. HERBESSER [Concomitant]
     Active Substance: DILTIAZEM HYDROCHLORIDE
  10. TAKECAB [Concomitant]
     Active Substance: VONOPRAZAN FUMURATE
  11. OPSUMIT [Suspect]
     Active Substance: MACITENTAN
     Indication: PULMONARY HYPERTENSION
     Dosage: 10 MG, OD
     Route: 048
     Dates: start: 20171129, end: 20171211

REACTIONS (3)
  - Angiosarcoma [Fatal]
  - Concomitant disease aggravated [Fatal]
  - Tumour embolism [Fatal]

NARRATIVE: CASE EVENT DATE: 20171211
